FAERS Safety Report 6896465-6 (Version None)
Quarter: 2010Q3

REPORT INFORMATION
  Report Type: 
  Country: None (occurrence: None)
  Receive Date: 20100802
  Receipt Date: 20090225
  Transmission Date: 20110219
  Serious: Yes (Other)
  Sender: FDA-Public Use
  Company Number: US-PFIZER INC-2009158298

PATIENT
  Sex: Female
  Weight: 47.173 kg

DRUGS (7)
  1. AMLODIPINE BESYLATE [Suspect]
     Indication: HYPERTENSION
     Dosage: 5 MG, 1X/DAY
     Dates: start: 20081101
  2. DITROPAN [Concomitant]
     Dosage: UNK
  3. TIMOLOL [Concomitant]
     Dosage: UNK
  4. CYCLOSPORINE [Concomitant]
     Dosage: UNK
  5. FML FORTE [Concomitant]
     Dosage: UNK
  6. LOTENSIN [Concomitant]
     Dosage: UNK
  7. SYNTHROID [Concomitant]
     Dosage: UNK

REACTIONS (1)
  - VISION BLURRED [None]
